FAERS Safety Report 4423876-0 (Version None)
Quarter: 2004Q3

REPORT INFORMATION
  Report Type: 
  Country: None (occurrence: None)
  Receive Date: 20040715
  Receipt Date: 20040114
  Transmission Date: 20050211
  Serious: Yes (Other)
  Sender: FDA-Public Use
  Company Number: 2004194470US

PATIENT
  Age: 38 Year
  Sex: Male

DRUGS (3)
  1. CELEBREX [Suspect]
     Indication: HAEMORRHOIDS
     Dosage: BID,
     Dates: start: 20031201, end: 20031201
  2. PROTONICS [Concomitant]
  3. PROZAC [Concomitant]

REACTIONS (1)
  - HAEMATEMESIS [None]
